FAERS Safety Report 23010368 (Version 2)
Quarter: 2023Q4

REPORT INFORMATION
  Report Type: Spontaneous
  Country: JP (occurrence: JP)
  Receive Date: 20230929
  Receipt Date: 20231030
  Transmission Date: 20240109
  Serious: Yes (Hospitalization, Other)
  Sender: FDA-Public Use
  Company Number: JP-NBI-BS202300243

PATIENT
  Age: 45 Year
  Sex: Male

DRUGS (9)
  1. MICARDIS [Suspect]
     Active Substance: TELMISARTAN
     Indication: Hypertension
     Route: 048
  2. MICARDIS [Suspect]
     Active Substance: TELMISARTAN
     Route: 048
  3. METFORMIN HYDROCHLORIDE\VILDAGLIPTIN [Suspect]
     Active Substance: METFORMIN HYDROCHLORIDE\VILDAGLIPTIN
     Indication: Diabetes mellitus
     Route: 048
  4. METFORMIN HYDROCHLORIDE\VILDAGLIPTIN [Suspect]
     Active Substance: METFORMIN HYDROCHLORIDE\VILDAGLIPTIN
     Route: 048
  5. EPERISONE HYDROCHLORIDE [Concomitant]
     Active Substance: EPERISONE HYDROCHLORIDE
     Indication: Product used for unknown indication
     Route: 048
  6. FAMOTIDINE [Concomitant]
     Active Substance: FAMOTIDINE
     Indication: Product used for unknown indication
     Route: 048
  7. FAMOTIDINE [Concomitant]
     Active Substance: FAMOTIDINE
     Route: 048
  8. TOFOGLIFLOZIN HYDRATE [Concomitant]
     Indication: Product used for unknown indication
     Route: 048
  9. TOFOGLIFLOZIN HYDRATE [Concomitant]
     Route: 048

REACTIONS (5)
  - Lactic acidosis [Recovering/Resolving]
  - Blood pressure decreased [Unknown]
  - Acute kidney injury [Unknown]
  - Suicidal ideation [Unknown]
  - Overdose [Unknown]
